FAERS Safety Report 4559398-6 (Version None)
Quarter: 2005Q1

REPORT INFORMATION
  Report Type: 
  Country: None (occurrence: None)
  Receive Date: 20050120
  Receipt Date: 20050120
  Transmission Date: 20050727
  Serious: Yes (Hospitalization)
  Sender: FDA-Public Use
  Company Number: None

PATIENT
  Age: 59 Year

DRUGS (8)
  1. PIROXICAM [Suspect]
     Dosage: 20 MG QD [CHRONIC !YEARS]
  2. PLAVIX [Suspect]
     Dosage: 75 MG QD
  3. ZYBAN [Concomitant]
  4. SERTRALINE HCL [Concomitant]
  5. TRAZODONE HCL [Concomitant]
  6. GABAPENTN [Concomitant]
  7. FLEXERIL [Concomitant]
  8. METORPOLOL [Concomitant]

REACTIONS (2)
  - GASTROINTESTINAL HAEMORRHAGE [None]
  - MELAENA [None]
